FAERS Safety Report 4862829-5 (Version None)
Quarter: 2005Q4

REPORT INFORMATION
  Report Type: 
  Country: None (occurrence: None)
  Receive Date: 20051221
  Receipt Date: 20051213
  Transmission Date: 20060501
  Serious: Yes (Other)
  Sender: FDA-Public Use
  Company Number: PHEH2005US13500

PATIENT
  Age: 51 Year
  Sex: Female
  Weight: 65.759 kg

DRUGS (3)
  1. DIOVAN [Suspect]
     Indication: HYPERTENSION
     Dosage: 320 MG, QD
     Dates: start: 19980109
  2. ASPIRINA [Concomitant]
  3. CARDIZEM [Concomitant]

REACTIONS (1)
  - IRON DEFICIENCY ANAEMIA [None]
